FAERS Safety Report 21328857 (Version 7)
Quarter: 2024Q3

REPORT INFORMATION
  Report Type: Spontaneous
  Country: US (occurrence: US)
  Receive Date: 20220913
  Receipt Date: 20240827
  Transmission Date: 20241017
  Serious: Yes (Other)
  Sender: PFIZER
  Company Number: US-PFIZER INC-202201147438

PATIENT
  Age: 58 Year
  Sex: Female
  Weight: 56.7 kg

DRUGS (4)
  1. IBRANCE [Suspect]
     Active Substance: PALBOCICLIB
     Indication: Breast cancer metastatic
     Dosage: 21 DAYS, 7 DAYS OFF
     Route: 048
     Dates: start: 201606
  2. IBRANCE [Suspect]
     Active Substance: PALBOCICLIB
     Dosage: 75MG TABLET ONE TABLET A DAY FOR 21 DAYS AND OFF 7 DAYS
     Route: 048
  3. LETROZOLE [Suspect]
     Active Substance: LETROZOLE
     Indication: Hormone suppression therapy
     Dosage: 2.5 MG, DAILY
     Dates: start: 201606
  4. LETROZOLE [Suspect]
     Active Substance: LETROZOLE
     Indication: Breast cancer stage IV

REACTIONS (10)
  - Hysterectomy [Unknown]
  - Fatigue [Unknown]
  - Weight decreased [Unknown]
  - Immune system disorder [Unknown]
  - White blood cell count abnormal [Unknown]
  - Gastrointestinal disorder [Unknown]
  - Abdominal pain upper [Unknown]
  - Vision blurred [Unknown]
  - Alopecia [Recovering/Resolving]
  - Decreased immune responsiveness [Recovering/Resolving]

NARRATIVE: CASE EVENT DATE: 20160601
